FAERS Safety Report 24694308 (Version 2)
Quarter: 2025Q1

REPORT INFORMATION
  Report Type: Spontaneous
  Country: US (occurrence: US)
  Receive Date: 20241204
  Receipt Date: 20250304
  Transmission Date: 20250408
  Serious: No
  Sender: CELLTRION
  Company Number: US-CELLTRION INC.-2024US026673

PATIENT

DRUGS (2)
  1. YUFLYMA [Suspect]
     Active Substance: ADALIMUMAB-AATY
     Indication: Crohn^s disease
     Dosage: 80MG/0.8ML ADMINISTERED SUBCUTANEOUSLY ONCE EVERY TWO WEEKS
     Route: 058
     Dates: start: 202409
  2. YUFLYMA [Suspect]
     Active Substance: ADALIMUMAB-AATY
     Indication: Colitis

REACTIONS (4)
  - Product leakage [Recovering/Resolving]
  - Skin discolouration [Recovering/Resolving]
  - Accidental exposure to product [Recovering/Resolving]
  - Exposure via skin contact [Recovering/Resolving]

NARRATIVE: CASE EVENT DATE: 20241023
